FAERS Safety Report 22229675 (Version 1)
Quarter: 2023Q2

REPORT INFORMATION
  Report Type: Spontaneous
  Country: US (occurrence: None)
  Receive Date: 20230418
  Receipt Date: 20230418
  Transmission Date: 20230721
  Serious: Yes (Hospitalization)
  Sender: FDA-Public Use
  Company Number: None

PATIENT
  Sex: Male

DRUGS (2)
  1. ENOXAPARIN [Suspect]
     Active Substance: ENOXAPARIN
     Dosage: 80 MG/0.8ML ??INJECT 0.8 ML (80 MG TOTAL) UNDER THE SKIN (SUBCUTANEOUS INJECTION) EVERY 12 HOURS FOR
     Route: 058
  2. ENOXAPARIN [Suspect]
     Active Substance: ENOXAPARIN
     Dosage: OTHER QUANTITY : 0.8ML (80MG TOTAL);?OTHER FREQUENCY : Q 12 HRS - 14 DAYS;?
     Route: 058

REACTIONS (2)
  - Deep vein thrombosis [None]
  - Therapy interrupted [None]
